FAERS Safety Report 24996260 (Version 2)
Quarter: 2025Q4

REPORT INFORMATION
  Report Type: Spontaneous
  Country: US (occurrence: US)
  Receive Date: 20250221
  Receipt Date: 20251008
  Transmission Date: 20260117
  Serious: Yes (Hospitalization)
  Sender: JOHNSON AND JOHNSON
  Company Number: US-JNJFOC-20250254893

PATIENT
  Sex: Male

DRUGS (1)
  1. HUMAN THROMBIN [Suspect]
     Active Substance: HUMAN THROMBIN
     Indication: Haemostasis
     Route: 061
     Dates: start: 20240903

REACTIONS (1)
  - Postoperative wound infection [Recovering/Resolving]

NARRATIVE: CASE EVENT DATE: 20240101
